FAERS Safety Report 8798989 (Version 2)
Quarter: 2012Q4

REPORT INFORMATION
  Report Type: Report from Study
  Country: US (occurrence: US)
  Receive Date: 20120920
  Receipt Date: 20121012
  Transmission Date: 20130627
  Serious: Yes (Other)
  Sender: FDA-Public Use
  Company Number: US-ABBOTT-12P-163-0950203-00

PATIENT
  Age: 63 Year
  Sex: Male

DRUGS (23)
  1. HUMIRA 40 MG/0.8 ML PEN [Suspect]
     Indication: CROHN^S DISEASE
     Dosage: 160mg loading dose
     Route: 050
     Dates: start: 20120607, end: 20120607
  2. HUMIRA 40 MG/0.8 ML PEN [Suspect]
     Dosage: 80mg loading dose
     Dates: start: 20120622, end: 20120622
  3. HUMIRA 40 MG/0.8 ML PEN [Suspect]
     Route: 050
  4. TEKTURNA [Suspect]
     Indication: BLOOD PRESSURE
     Dosage: Daily
  5. UNKNOWN BLOOD PRESSURE MEDICATION [Suspect]
     Indication: PRODUCT USED FOR UNKNOWN INDICATION
  6. PREDNISONE [Concomitant]
     Indication: PRODUCT USED FOR UNKNOWN INDICATION
     Dosage: 20mg daily
  7. CLONIDINE [Concomitant]
     Indication: HYPERTENSION
     Dosage: Patch applied weekly
  8. VICODIN [Concomitant]
     Indication: PAIN
  9. SOMA [Concomitant]
     Indication: BACK PAIN
     Dosage: 250mg 1-2 times daily
  10. LOTREL [Concomitant]
     Indication: HYPERTENSION
     Dosage: 40mg daily
  11. TRILIPIX [Concomitant]
     Indication: BLOOD CHOLESTEROL INCREASED
     Dosage: Daily
  12. XANAX [Concomitant]
     Indication: DEPRESSION
     Dosage: 2 tablets daily
  13. XANAX [Concomitant]
     Indication: ANXIETY
  14. XANAX [Concomitant]
     Indication: PANIC ATTACK
  15. SEROQUEL [Concomitant]
     Indication: INSOMNIA
     Dosage: 200mg daily
  16. WELCHOL [Concomitant]
     Indication: DIARRHOEA
  17. WELLBUTRIN [Concomitant]
     Indication: DEPRESSION
     Dosage: 300mg daily
  18. OMEPRAZOLE [Concomitant]
     Indication: GASTROOESOPHAGEAL REFLUX DISEASE
     Dosage: 40mg daily
  19. LOVASTATIN [Concomitant]
     Indication: HYPERTENSION
     Dosage: 10mg daily
  20. LOPRESSOR [Concomitant]
     Indication: HYPERTENSION
  21. ZOLOFT [Concomitant]
     Indication: DEPRESSION
     Dosage: 100mg daily
  22. ASACOL [Concomitant]
     Indication: CROHN^S DISEASE
     Dosage: 800mg 6 tablets daily
  23. BENICAR [Concomitant]
     Indication: HYPERTENSION
     Dates: start: 201209

REACTIONS (13)
  - Skin cancer [Not Recovered/Not Resolved]
  - Renal impairment [Not Recovered/Not Resolved]
  - Blood blister [Not Recovered/Not Resolved]
  - Pruritus [Not Recovered/Not Resolved]
  - Hypertension [Not Recovered/Not Resolved]
  - Injection site bruising [Recovering/Resolving]
  - Oedema peripheral [Recovering/Resolving]
  - Decreased appetite [Unknown]
  - Weight decreased [Unknown]
  - Rash [Unknown]
  - Drug hypersensitivity [Unknown]
  - Incision site erythema [Unknown]
  - Injection site pain [Unknown]
